FAERS Safety Report 20428983 (Version 1)
Quarter: 2022Q1

REPORT INFORMATION
  Report Type: Other
  Country: TW (occurrence: None)
  Receive Date: 20220204
  Receipt Date: 20220204
  Transmission Date: 20220423
  Serious: Yes (Other)
  Sender: FDA-Public Use
  Company Number: TW-ROCHE-3009806

PATIENT

DRUGS (2)
  1. ATEZOLIZUMAB [Suspect]
     Active Substance: ATEZOLIZUMAB
     Indication: Hepatocellular carcinoma
     Route: 042
  2. BEVACIZUMAB [Suspect]
     Active Substance: BEVACIZUMAB
     Indication: Hepatocellular carcinoma
     Dosage: 5-7.5 MG/KG
     Route: 042

REACTIONS (12)
  - Hypertension [Unknown]
  - Fatigue [Unknown]
  - Proteinuria [Unknown]
  - Aspartate aminotransferase increased [Unknown]
  - Alanine aminotransferase increased [Unknown]
  - Diarrhoea [Unknown]
  - Decreased appetite [Unknown]
  - Rash [Unknown]
  - Abdominal pain [Unknown]
  - Nausea [Unknown]
  - Palmar-plantar erythrodysaesthesia syndrome [Unknown]
  - Haemorrhage [Unknown]
